FAERS Safety Report 16186539 (Version 4)
Quarter: 2022Q1

REPORT INFORMATION
  Report Type: Other
  Country: CA (occurrence: CA)
  Receive Date: 20190411
  Receipt Date: 20220324
  Transmission Date: 20220423
  Serious: Yes (Other)
  Sender: FDA-Public Use
  Company Number: CA-NAPPMUNDI-CAN-2019-0009902

PATIENT
  Age: 31 Year
  Sex: Female
  Weight: 52 kg

DRUGS (58)
  1. HYDROMORPHONE [Suspect]
     Active Substance: HYDROMORPHONE
     Indication: Post-traumatic pain
     Dosage: 24 MG, TID
     Route: 048
  2. HYDROMORPHONE [Suspect]
     Active Substance: HYDROMORPHONE
     Dosage: 24 MG, TID
     Route: 065
  3. HYDROMORPHONE HYDROCHLORIDE [Suspect]
     Active Substance: HYDROMORPHONE HYDROCHLORIDE
     Indication: Post-traumatic pain
     Dosage: 8 MG, Q4H
     Route: 065
  4. HYDROMORPHONE HYDROCHLORIDE [Suspect]
     Active Substance: HYDROMORPHONE HYDROCHLORIDE
     Dosage: 8 MG, Q8H
     Route: 048
  5. HYDROMORPHONE HYDROCHLORIDE [Suspect]
     Active Substance: HYDROMORPHONE HYDROCHLORIDE
     Dosage: 12 MG, Q3H
     Route: 048
  6. HYDROMORPHONE HYDROCHLORIDE [Suspect]
     Active Substance: HYDROMORPHONE HYDROCHLORIDE
     Dosage: UNK
     Route: 048
  7. HYDROMORPHONE HYDROCHLORIDE [Suspect]
     Active Substance: HYDROMORPHONE HYDROCHLORIDE
     Dosage: 8 MG, TID
     Route: 065
  8. HYDROMORPHONE HYDROCHLORIDE [Suspect]
     Active Substance: HYDROMORPHONE HYDROCHLORIDE
     Dosage: 8 MG, TID
     Route: 064
  9. HYDROMORPHONE HYDROCHLORIDE [Suspect]
     Active Substance: HYDROMORPHONE HYDROCHLORIDE
     Dosage: 8 MG, TID
     Route: 042
  10. FENTANYL [Suspect]
     Active Substance: FENTANYL
     Indication: Post-traumatic pain
     Dosage: 125 MCG, Q72H
     Route: 065
  11. FENTANYL [Suspect]
     Active Substance: FENTANYL
     Dosage: 100 MCG, Q72H
     Route: 065
  12. FENTANYL [Suspect]
     Active Substance: FENTANYL
     Dosage: 100 MCG, CYCLICAL
     Route: 065
  13. FENTANYL [Suspect]
     Active Substance: FENTANYL
     Dosage: 125 MCG, UNK
     Route: 064
  14. FENTANYL [Suspect]
     Active Substance: FENTANYL
     Dosage: 125 MCG, UNK
     Route: 065
  15. FENTANYL [Suspect]
     Active Substance: FENTANYL
     Dosage: 100 MCG, Q72H
     Route: 065
  16. FENTANYL [Suspect]
     Active Substance: FENTANYL
     Dosage: 100 MCG, CYCLICAL
     Route: 065
  17. FENTANYL [Suspect]
     Active Substance: FENTANYL
     Dosage: 125 MCG, UNK
     Route: 064
  18. FENTANYL [Suspect]
     Active Substance: FENTANYL
     Dosage: 125 MCG, UNK
     Route: 065
  19. FENTANYL [Suspect]
     Active Substance: FENTANYL
     Dosage: 125 MG, CYCLICAL
     Route: 065
  20. AMITRIPTYLINE [Suspect]
     Active Substance: AMITRIPTYLINE
     Indication: Product used for unknown indication
     Dosage: 25 MG, DAILY
     Route: 065
  21. AMITRIPTYLINE [Suspect]
     Active Substance: AMITRIPTYLINE
     Dosage: 25 MG, DAILY
     Route: 048
  22. AMITRIPTYLINE [Suspect]
     Active Substance: AMITRIPTYLINE
     Dosage: 25 MG, UNK
     Route: 065
  23. AMITRIPTYLINE [Suspect]
     Active Substance: AMITRIPTYLINE
     Dosage: 25 MG, UNK
     Route: 064
  24. AMITRIPTYLINE [Suspect]
     Active Substance: AMITRIPTYLINE
     Dosage: 25 MG, DAILY
     Route: 048
  25. AMITRIPTYLINE [Suspect]
     Active Substance: AMITRIPTYLINE
     Dosage: 25 MG, UNK
     Route: 065
  26. AMITRIPTYLINE [Suspect]
     Active Substance: AMITRIPTYLINE
     Dosage: 25 MG, UNK
     Route: 064
  27. ENOXAPARIN SODIUM [Suspect]
     Active Substance: ENOXAPARIN SODIUM
     Indication: Product used for unknown indication
     Dosage: UNK
     Route: 065
  28. ENOXAPARIN SODIUM [Suspect]
     Active Substance: ENOXAPARIN SODIUM
     Dosage: UNK
     Route: 065
  29. ENOXAPARIN SODIUM [Suspect]
     Active Substance: ENOXAPARIN SODIUM
     Dosage: UNK
     Route: 064
  30. ENOXAPARIN SODIUM [Suspect]
     Active Substance: ENOXAPARIN SODIUM
     Route: 065
  31. ENOXAPARIN SODIUM [Suspect]
     Active Substance: ENOXAPARIN SODIUM
     Dosage: UNK
     Route: 064
  32. GRAVOL [Suspect]
     Active Substance: DIMENHYDRINATE
     Indication: Hyperemesis gravidarum
     Dosage: UNK
     Route: 065
  33. GRAVOL [Suspect]
     Active Substance: DIMENHYDRINATE
     Dosage: UNK
     Route: 042
  34. GRAVOL [Suspect]
     Active Substance: DIMENHYDRINATE
     Dosage: UNK
     Route: 065
  35. GRAVOL [Suspect]
     Active Substance: DIMENHYDRINATE
     Dosage: UNK
     Route: 064
  36. GRAVOL [Suspect]
     Active Substance: DIMENHYDRINATE
     Route: 042
  37. GRAVOL [Suspect]
     Active Substance: DIMENHYDRINATE
     Dosage: UNK
     Route: 065
  38. GRAVOL [Suspect]
     Active Substance: DIMENHYDRINATE
     Dosage: UNK
     Route: 064
  39. LORAZEPAM [Suspect]
     Active Substance: LORAZEPAM
     Indication: Product used for unknown indication
     Dosage: 0.5 MG, DAILY
     Route: 065
  40. LORAZEPAM [Suspect]
     Active Substance: LORAZEPAM
     Dosage: 0.5 MG, DAILY
     Route: 065
  41. LORAZEPAM [Suspect]
     Active Substance: LORAZEPAM
     Dosage: 0.5 MG, DAILY
     Route: 064
  42. LORAZEPAM [Suspect]
     Active Substance: LORAZEPAM
     Route: 065
  43. LORAZEPAM [Suspect]
     Active Substance: LORAZEPAM
     Dosage: 0.5 MG, DAILY
     Route: 064
  44. ONDANSETRON [Suspect]
     Active Substance: ONDANSETRON
     Indication: Hyperemesis gravidarum
     Dosage: UNK
     Route: 065
  45. ONDANSETRON [Suspect]
     Active Substance: ONDANSETRON
     Dosage: UNK
     Route: 042
  46. ONDANSETRON [Suspect]
     Active Substance: ONDANSETRON
     Dosage: UNK
     Route: 064
  47. ONDANSETRON [Suspect]
     Active Substance: ONDANSETRON
     Route: 042
  48. ONDANSETRON [Suspect]
     Active Substance: ONDANSETRON
     Dosage: UNK
     Route: 065
  49. ONDANSETRON [Suspect]
     Active Substance: ONDANSETRON
     Dosage: UNK
     Route: 064
  50. PANTOPRAZOLE [Suspect]
     Active Substance: PANTOPRAZOLE
     Indication: Product used for unknown indication
     Dosage: UNK
     Route: 065
  51. PANTOPRAZOLE [Suspect]
     Active Substance: PANTOPRAZOLE
     Dosage: UNK
     Route: 065
  52. PANTOPRAZOLE [Suspect]
     Active Substance: PANTOPRAZOLE
     Dosage: UNK
     Route: 064
  53. PANTOPRAZOLE [Suspect]
     Active Substance: PANTOPRAZOLE
     Route: 065
  54. PANTOPRAZOLE [Suspect]
     Active Substance: PANTOPRAZOLE
     Dosage: UNK
     Route: 064
  55. PROCHLORPERAZINE [Suspect]
     Active Substance: PROCHLORPERAZINE
     Indication: Hyperemesis gravidarum
     Dosage: UNK
     Route: 065
  56. PROCHLORPERAZINE [Suspect]
     Active Substance: PROCHLORPERAZINE
     Dosage: UNK
     Route: 042
  57. PROCHLORPERAZINE [Suspect]
     Active Substance: PROCHLORPERAZINE
     Dosage: UNK
     Route: 064
  58. PROCHLORPERAZINE [Suspect]
     Active Substance: PROCHLORPERAZINE
     Dosage: UNK
     Route: 036

REACTIONS (5)
  - Premature delivery [Unknown]
  - Live birth [Unknown]
  - Drug withdrawal syndrome [Unknown]
  - Maternal exposure during pregnancy [Unknown]
  - Pulmonary embolism [Unknown]
